FAERS Safety Report 24436049 (Version 1)
Quarter: 2024Q4

REPORT INFORMATION
  Report Type: Report from Study
  Country: US (occurrence: US)
  Receive Date: 20241015
  Receipt Date: 20241015
  Transmission Date: 20250115
  Serious: Yes (Other)
  Sender: ABBVIE
  Company Number: US-ABBVIE-5959383

PATIENT
  Sex: Female

DRUGS (1)
  1. HUMIRA [Suspect]
     Active Substance: ADALIMUMAB
     Indication: Psoriasis
     Dosage: CF
     Route: 058
     Dates: start: 20180629

REACTIONS (5)
  - Intracranial aneurysm [Recovered/Resolved]
  - Respiratory disorder [Recovering/Resolving]
  - Cerebrovascular accident [Recovered/Resolved]
  - Hypertension [Recovering/Resolving]
  - Pain in extremity [Recovering/Resolving]
